FAERS Safety Report 15251384 (Version 1)
Quarter: 2018Q3

REPORT INFORMATION
  Report Type: Spontaneous
  Country: US (occurrence: US)
  Receive Date: 20180717
  Receipt Date: 20180717
  Transmission Date: 20181010
  Serious: Yes (Hospitalization)
  Sender: FDA-Public Use
  Company Number: None

PATIENT
  Age: 77 Year
  Sex: Male

DRUGS (16)
  1. HUMALOG [Concomitant]
     Active Substance: INSULIN LISPRO
  2. LEVEMIR [Concomitant]
     Active Substance: INSULIN DETEMIR
  3. METAMUCIL [Concomitant]
     Active Substance: PLANTAGO SEED
  4. ADCIRCA [Suspect]
     Active Substance: TADALAFIL
     Indication: PULMONARY ARTERIAL HYPERTENSION
     Route: 048
     Dates: start: 20150303
  5. CARVEDILOL. [Concomitant]
     Active Substance: CARVEDILOL
  6. POTASSIUM CHLORIDE. [Concomitant]
     Active Substance: POTASSIUM CHLORIDE
  7. XARELTO [Concomitant]
     Active Substance: RIVAROXABAN
  8. TIKOSYN [Concomitant]
     Active Substance: DOFETILIDE
  9. PROBENECID. [Concomitant]
     Active Substance: PROBENECID
  10. COLORYS [Concomitant]
  11. LISINOPRIL. [Concomitant]
     Active Substance: LISINOPRIL
  12. NOVOLOG [Concomitant]
     Active Substance: INSULIN ASPART
  13. METOLAZONE. [Concomitant]
     Active Substance: METOLAZONE
  14. TAMSULOSIN [Concomitant]
     Active Substance: TAMSULOSIN
  15. DOFETILIDE. [Concomitant]
     Active Substance: DOFETILIDE
  16. NITROGLYCERIN. [Concomitant]
     Active Substance: NITROGLYCERIN

REACTIONS (1)
  - Fluid retention [None]

NARRATIVE: CASE EVENT DATE: 20180625
